FAERS Safety Report 16427173 (Version 1)
Quarter: 2019Q3

REPORT INFORMATION
  Report Type: Spontaneous
  Country: US (occurrence: US)
  Receive Date: 20190612
  Receipt Date: 20190612
  Transmission Date: 20191004
  Serious: No
  Sender: FDA-Public Use
  Company Number: None

PATIENT
  Age: 66 Year
  Sex: Female
  Weight: 97.65 kg

DRUGS (10)
  1. LOVASTATIN 40MG TAB [Concomitant]
  2. ASPIRIN 81MG TAB [Concomitant]
  3. IBDUR 30MG 24HR TAB [Concomitant]
  4. APIXABAN 5MG TAB [Concomitant]
  5. HYDROCHLOROTHIAZIDE 12.5MG TAB [Concomitant]
     Active Substance: HYDROCHLOROTHIAZIDE
  6. METFORMIN [Concomitant]
     Active Substance: METFORMIN HYDROCHLORIDE
  7. GLYBURIDE 2.5MG TAB [Concomitant]
  8. AMLODIPINE [Suspect]
     Active Substance: AMLODIPINE BESYLATE
     Route: 048
     Dates: start: 20190501, end: 20190612
  9. METOPROLOL TARTRATE 25MG TAB [Concomitant]
  10. LISINOPRIL 20MG TAB [Concomitant]

REACTIONS (1)
  - Oedema peripheral [None]

NARRATIVE: CASE EVENT DATE: 20190612
